FAERS Safety Report 15150892 (Version 1)
Quarter: 2018Q3

REPORT INFORMATION
  Report Type: Spontaneous
  Country: US (occurrence: US)
  Receive Date: 20180716
  Receipt Date: 20180716
  Transmission Date: 20181010
  Serious: Yes (Other)
  Sender: FDA-Public Use
  Company Number: US-SA-2017SA254575

PATIENT
  Age: 52 Year
  Sex: Female
  Weight: 90 kg

DRUGS (15)
  1. TAXOTERE [Suspect]
     Active Substance: DOCETAXEL
     Dosage: 160 MG,Q3W
     Route: 042
     Dates: start: 20121231, end: 20121231
  2. DEXAMETHASONE. [Concomitant]
     Active Substance: DEXAMETHASONE
     Dosage: 10 MG
     Route: 065
     Dates: start: 20121210, end: 20130211
  3. TAXOTERE [Suspect]
     Active Substance: DOCETAXEL
     Dosage: 160 UNK
     Route: 042
     Dates: start: 20130121, end: 20130121
  4. CYCLOPHOSPHAMIDE. [Concomitant]
     Active Substance: CYCLOPHOSPHAMIDE
     Dosage: 1000 MG
     Route: 065
     Dates: start: 20121210, end: 20130211
  5. NEULASTA [Concomitant]
     Active Substance: PEGFILGRASTIM
     Dosage: 1 MG
     Route: 051
     Dates: start: 20121211, end: 20121211
  6. NEULASTA [Concomitant]
     Active Substance: PEGFILGRASTIM
     Dosage: 4 MG
     Route: 051
     Dates: start: 20130102, end: 20130102
  7. NEULASTA [Concomitant]
     Active Substance: PEGFILGRASTIM
     Dosage: 6 MG
     Route: 051
     Dates: start: 20130122, end: 20130122
  8. CYTOXAN [Concomitant]
     Active Substance: CYCLOPHOSPHAMIDE
     Route: 065
  9. ALOXI [Concomitant]
     Active Substance: PALONOSETRON HYDROCHLORIDE
     Dosage: 250 UG
     Route: 065
     Dates: start: 20121210, end: 20130211
  10. CYCLOPHOSPHAMIDE. [Concomitant]
     Active Substance: CYCLOPHOSPHAMIDE
     Dosage: 290 MG
     Route: 065
     Dates: start: 20121210, end: 20130211
  11. TAXOTERE [Suspect]
     Active Substance: DOCETAXEL
     Indication: BREAST CANCER FEMALE
     Dosage: 160 MG,Q3W
     Route: 042
     Dates: start: 20121210, end: 20121210
  12. TAXOTERE [Suspect]
     Active Substance: DOCETAXEL
     Dosage: 160 UNK
     Route: 042
     Dates: start: 20130211, end: 20130211
  13. DIPHENHYDRAMINE. [Concomitant]
     Active Substance: DIPHENHYDRAMINE
     Dosage: 25 MG
     Route: 065
     Dates: start: 20121210
  14. EMEND [FOSAPREPITANT MEGLUMINE] [Concomitant]
     Dosage: 150 MG
     Route: 065
     Dates: start: 20121210, end: 20130211
  15. LISINOPRIL. [Concomitant]
     Active Substance: LISINOPRIL
     Dosage: UNK UNK,UNK
     Route: 065
     Dates: start: 20100101, end: 20161231

REACTIONS (2)
  - Psychological trauma [Unknown]
  - Alopecia [Not Recovered/Not Resolved]

NARRATIVE: CASE EVENT DATE: 20130201
